FAERS Safety Report 7216863-0 (Version None)
Quarter: 2010Q4

REPORT INFORMATION
  Report Type: 
  Country: None (occurrence: None)
  Receive Date: 20101230
  Receipt Date: 20101221
  Transmission Date: 20110411
  Serious: Yes (Other)
  Sender: FDA-Public Use
  Company Number: 2010MA005454

PATIENT
  Age: 69 Year
  Sex: Male

DRUGS (11)
  1. MELOXICAM [Suspect]
     Indication: PAIN
     Dosage: 7.5 MG; QD;
     Dates: start: 20100916
  2. RAMIPRIL [Suspect]
     Indication: BLOOD PRESSURE INCREASED
     Dosage: 1.25 MG; QD;
  3. BISOPROLOL (BISOPROLOL) [Suspect]
     Indication: BLOOD PRESSURE INCREASED
     Dosage: 1.25 MG; QD;
  4. ASPIRIN [Suspect]
     Indication: MYOCARDIAL INFARCTION
     Dosage: 75 MG; QD;
  5. SERETIDE [Concomitant]
  6. ISOSORBIDE DINITRATE [Concomitant]
  7. OMEPRAZOLE [Concomitant]
  8. QUININE [Concomitant]
  9. TIOTROIUM BROMIDE [Concomitant]
  10. VENTOLIN [Concomitant]
  11. STEROIDS [Concomitant]

REACTIONS (8)
  - CHROMATURIA [None]
  - CONFUSIONAL STATE [None]
  - DELIRIUM [None]
  - DEPRESSED LEVEL OF CONSCIOUSNESS [None]
  - DIARRHOEA [None]
  - DRUG INTERACTION [None]
  - EYE ROLLING [None]
  - HALLUCINATION [None]
